FAERS Safety Report 8896243 (Version 1)
Quarter: 2012Q4

REPORT INFORMATION
  Report Type: Spontaneous
  Country: US (occurrence: None)
  Receive Date: 20121106
  Receipt Date: 20121106
  Transmission Date: 20130627
  Serious: Yes (Other)
  Sender: FDA-Public Use
  Company Number: None

PATIENT
  Sex: Female
  Weight: 100.7 kg

DRUGS (2)
  1. WARFARIN [Suspect]
     Indication: HYPERCOAGULATION
     Dosage: 10mg po QD
     Route: 048
     Dates: start: 201103
  2. WARFARIN [Suspect]
     Indication: HYPERCOAGULATION
     Dates: start: 201207

REACTIONS (2)
  - Laboratory test abnormal [None]
  - Product substitution issue [None]
